FAERS Safety Report 6666055-9 (Version None)
Quarter: 2010Q2

REPORT INFORMATION
  Report Type: 
  Country: None (occurrence: None)
  Receive Date: 20100402
  Receipt Date: 20100326
  Transmission Date: 20101027
  Serious: Yes (Hospitalization)
  Sender: FDA-Public Use
  Company Number: B0641020A

PATIENT
  Sex: Female
  Weight: 49 kg

DRUGS (5)
  1. TOPOTECAN [Suspect]
     Indication: OVARIAN CANCER RECURRENT
     Dosage: 1.89MG CYCLIC
     Route: 042
     Dates: start: 20100301, end: 20100305
  2. BLINDED STUDY MEDICATION [Suspect]
     Indication: OVARIAN CANCER
     Dates: start: 20100306, end: 20100315
  3. TILIDIN [Concomitant]
     Indication: PAIN
     Dosage: 50MG PER DAY
     Route: 048
     Dates: start: 20100222, end: 20100301
  4. FEMARA [Concomitant]
     Indication: BREAST CANCER
     Dosage: 2.5MG PER DAY
     Route: 048
     Dates: start: 20080101
  5. CALCIUM D3 [Concomitant]
     Route: 048
     Dates: start: 20080101

REACTIONS (6)
  - ABDOMINAL PAIN [None]
  - CHOLECYSTITIS [None]
  - LEUKOPENIA [None]
  - NAUSEA [None]
  - NEUTROPENIA [None]
  - VOMITING [None]
